FAERS Safety Report 26021256 (Version 3)
Quarter: 2025Q4

REPORT INFORMATION
  Report Type: Spontaneous
  Country: JP (occurrence: JP)
  Receive Date: 20251110
  Receipt Date: 20251112
  Transmission Date: 20260118
  Serious: Yes (Other)
  Sender: PFIZER
  Company Number: JP-PFIZER INC-PV202500129997

PATIENT
  Age: 56 Year
  Sex: Female

DRUGS (1)
  1. LORBRENA [Suspect]
     Active Substance: LORLATINIB
     Indication: Non-small cell lung cancer
     Dosage: 100 MG
     Dates: start: 2021, end: 2024

REACTIONS (1)
  - Autoimmune thyroiditis [Recovered/Resolved]

NARRATIVE: CASE EVENT DATE: 20220101
